FAERS Safety Report 8839891 (Version 1)
Quarter: 2012Q4

REPORT INFORMATION
  Report Type: Spontaneous
  Country: GB (occurrence: None)
  Receive Date: 20121011
  Receipt Date: 20121011
  Transmission Date: 20130627
  Serious: Yes (Disabling)
  Sender: FDA-Public Use
  Company Number: AUR-APL-2012-04252

PATIENT
  Sex: Male
  Weight: 90 kg

DRUGS (4)
  1. DOXAZOSIN [Suspect]
     Dosage: 4 mg (2 mg, 2 in 1 D), Oral
     Route: 048
     Dates: start: 20120415, end: 20120416
  2. AMLODIPINE (AMLODIPINE) [Suspect]
  3. INDAPAMIDE [Concomitant]
  4. OLANZAPINE (OLANZAPINE) [Concomitant]

REACTIONS (12)
  - Angioedema [None]
  - Diarrhoea [None]
  - Psychotic disorder [None]
  - Arrhythmia [None]
  - Muscle spasms [None]
  - Withdrawal syndrome [None]
  - Cough [None]
  - Ear pain [None]
  - Hypersensitivity [None]
  - Hypertension [None]
  - Lacrimation increased [None]
  - Electrocardiogram QT prolonged [None]
